FAERS Safety Report 5675279-9 (Version None)
Quarter: 2008Q1

REPORT INFORMATION
  Report Type: 
  Country: None (occurrence: None)
  Receive Date: 20080320
  Receipt Date: 20080310
  Transmission Date: 20080703
  Serious: No
  Sender: FDA-Public Use
  Company Number: US-ELI_LILLY_AND_COMPANY-US200802007016

PATIENT
  Age: 55 Year
  Sex: Female
  Weight: 84.354 kg

DRUGS (6)
  1. CYMBALTA [Suspect]
     Indication: DEPRESSION
     Dosage: 30 MG, UNK
     Dates: start: 20071127, end: 20080101
  2. CYMBALTA [Suspect]
     Dosage: 60 MG, UNK
     Dates: start: 20080101
  3. CYMBALTA [Suspect]
     Dosage: 30 MG, UNK
     Dates: start: 20080101, end: 20080229
  4. LIPITOR [Concomitant]
     Dosage: 10 MG, UNK
     Dates: end: 20080229
  5. ZETIA [Concomitant]
     Dates: end: 20080229
  6. LEXAPRO [Concomitant]
     Dates: start: 20080229

REACTIONS (3)
  - ALANINE AMINOTRANSFERASE INCREASED [None]
  - ASPARTATE AMINOTRANSFERASE INCREASED [None]
  - FATIGUE [None]
